FAERS Safety Report 14453537 (Version 1)
Quarter: 2018Q1

REPORT INFORMATION
  Report Type: Spontaneous
  Country: US (occurrence: US)
  Receive Date: 20180127
  Receipt Date: 20180127
  Transmission Date: 20180509
  Serious: Yes (Life-Threatening, Hospitalization, Disabling, Other)
  Sender: FDA-Public Use
  Company Number: None

PATIENT
  Sex: Male
  Weight: 72 kg

DRUGS (3)
  1. DILANTIN [Concomitant]
     Active Substance: PHENYTOIN
  2. ATENOLOL. [Concomitant]
     Active Substance: ATENOLOL
  3. PHENYTOIN SODIUM IP 212 PURPLE BANDDOES NOT REPLACE DILANTIN RED BAND [Suspect]
     Active Substance: PHENYTOIN SODIUM
     Indication: SEIZURE
     Dosage: ?          QUANTITY:1 CAPSULE(S);?
     Route: 048
     Dates: start: 20170914, end: 20170924

REACTIONS (3)
  - Product substitution issue [None]
  - Drug ineffective [None]
  - Economic problem [None]

NARRATIVE: CASE EVENT DATE: 20170914
